FAERS Safety Report 10101723 (Version 1)
Quarter: 2014Q2

REPORT INFORMATION
  Report Type: Spontaneous
  Country: JP (occurrence: None)
  Receive Date: 20140422
  Receipt Date: 20140422
  Transmission Date: 20141212
  Serious: Yes (Other)
  Sender: FDA-Public Use
  Company Number: KAD201404-000408

PATIENT
  Age: 52 Year
  Sex: Male

DRUGS (5)
  1. RIBAVIRIN (RIBAVIRIN) [Suspect]
     Indication: HEPATITIS C
     Dates: start: 20140411, end: 20140421
  2. PEGINTERFERON ALFA-2B (PEGINTERFERON ALFA-2B) [Suspect]
     Indication: HEPATITIS C
  3. TELAPREVIR (TELAPREVIR) [Suspect]
     Indication: HEPATITIS C
  4. CYCLOSPORIN A [Suspect]
  5. MYCOPHENOLATE MOFETIL [Suspect]

REACTIONS (3)
  - Hepatitis [None]
  - Transplant rejection [None]
  - Plasma cell disorder [None]
